FAERS Safety Report 5581884-0 (Version None)
Quarter: 2008Q1

REPORT INFORMATION
  Report Type: 
  Country: None (occurrence: None)
  Receive Date: 20080104
  Receipt Date: 20071228
  Transmission Date: 20080703
  Serious: Yes (Hospitalization, Other)
  Sender: FDA-Public Use
  Company Number: PHBS2006JP05891

PATIENT
  Age: 10 Year
  Sex: Female

DRUGS (1)
  1. TEGRETOL [Suspect]
     Indication: EPILEPSY
     Dosage: UNK, UNK
     Route: 048
     Dates: start: 20020101, end: 20021015

REACTIONS (10)
  - ANTINUCLEAR ANTIBODY POSITIVE [None]
  - C-REACTIVE PROTEIN INCREASED [None]
  - DNA ANTIBODY POSITIVE [None]
  - HAEMOGLOBIN DECREASED [None]
  - INFLAMMATION [None]
  - LUNG INFECTION PSEUDOMONAL [None]
  - PLATELET COUNT DECREASED [None]
  - PYREXIA [None]
  - SYSTEMIC LUPUS ERYTHEMATOSUS [None]
  - URINE ANALYSIS ABNORMAL [None]
